FAERS Safety Report 8315852-2 (Version None)
Quarter: 2012Q2

REPORT INFORMATION
  Report Type: 
  Country: None (occurrence: None)
  Receive Date: 20120427
  Receipt Date: 20120416
  Transmission Date: 20120825
  Serious: No
  Sender: FDA-Public Use
  Company Number: US-BIOGENIDEC-2012BI012909

PATIENT
  Age: 54 Year
  Sex: Female

DRUGS (3)
  1. AVONEX [Suspect]
     Route: 030
     Dates: start: 20030815, end: 20040216
  2. AVONEX [Suspect]
     Route: 030
     Dates: start: 20040323
  3. AVONEX [Suspect]
     Indication: MULTIPLE SCLEROSIS
     Route: 030
     Dates: start: 19990701, end: 20030814

REACTIONS (4)
  - NUCLEAR MAGNETIC RESONANCE IMAGING ABNORMAL [None]
  - HEADACHE [None]
  - GAIT DISTURBANCE [None]
  - INFLUENZA LIKE ILLNESS [None]
